FAERS Safety Report 4817876-6 (Version None)
Quarter: 2005Q4

REPORT INFORMATION
  Report Type: 
  Country: None (occurrence: None)
  Receive Date: 20051031
  Receipt Date: 20051031
  Transmission Date: 20060501
  Serious: Yes (Hospitalization)
  Sender: FDA-Public Use
  Company Number: None

PATIENT
  Age: 53 Year
  Sex: Male
  Weight: 91.6266 kg

DRUGS (3)
  1. TRAMADOL [Suspect]
     Dosage: 100 MG QID
  2. SERTRALINE HCL [Suspect]
     Dosage: 50 MG QD
  3. QUETIAPINE FUMARATE [Suspect]
     Dosage: 200 MG PO Q HS
     Route: 048

REACTIONS (9)
  - ABDOMINAL PAIN UPPER [None]
  - BLOOD PRESSURE FLUCTUATION [None]
  - DIZZINESS [None]
  - DRUG INTERACTION [None]
  - DYSKINESIA [None]
  - MUSCLE SPASMS [None]
  - NAUSEA [None]
  - PARAESTHESIA [None]
  - SEROTONIN SYNDROME [None]
